FAERS Safety Report 9286403 (Version 1)
Quarter: 2013Q2

REPORT INFORMATION
  Report Type: Spontaneous
  Country: GB (occurrence: GB)
  Receive Date: 20130513
  Receipt Date: 20130513
  Transmission Date: 20140414
  Serious: Yes (Other)
  Sender: FDA-Public Use
  Company Number: GB-PFIZER INC-2013144785

PATIENT
  Age: 28 Year
  Sex: Male
  Weight: 69.85 kg

DRUGS (3)
  1. CHAMPIX [Suspect]
     Indication: SMOKING CESSATION THERAPY
     Dosage: 0.5MG, 1X/DAY
     Route: 048
     Dates: start: 20130301, end: 2013
  2. CHAMPIX [Suspect]
     Dosage: 0.5MG,  2X/DAY
     Route: 048
     Dates: start: 2013, end: 2013
  3. CHAMPIX [Suspect]
     Dosage: 1MG , 2X/DAY
     Route: 048
     Dates: start: 2013, end: 20130401

REACTIONS (8)
  - Agitation [Recovered/Resolved]
  - Mood swings [Recovered/Resolved]
  - Depression [Recovered/Resolved]
  - Suicidal ideation [Recovered/Resolved]
  - Sleep disorder [Recovered/Resolved]
  - Poor quality sleep [Recovered/Resolved]
  - Abnormal dreams [Recovered/Resolved]
  - Abnormal behaviour [Recovered/Resolved]
